FAERS Safety Report 19100987 (Version 1)
Quarter: 2021Q2

REPORT INFORMATION
  Report Type: Spontaneous
  Country: US (occurrence: US)
  Receive Date: 20210406
  Receipt Date: 20210406
  Transmission Date: 20210717
  Serious: Yes (Other)
  Sender: FDA-Public Use
  Company Number: None

PATIENT
  Age: 37 Year
  Sex: Female
  Weight: 83.92 kg

DRUGS (4)
  1. SYMBICORT [Concomitant]
     Active Substance: BUDESONIDE\FORMOTEROL FUMARATE DIHYDRATE
  2. MIRENA [Suspect]
     Active Substance: LEVONORGESTREL
     Dates: start: 20140429
  3. SINGULAIR [Concomitant]
     Active Substance: MONTELUKAST SODIUM
  4. SKYRIZI [Concomitant]
     Active Substance: RISANKIZUMAB-RZAA

REACTIONS (4)
  - Complication associated with device [None]
  - Psoriasis [None]
  - Autoimmune disorder [None]
  - Inflammation [None]

NARRATIVE: CASE EVENT DATE: 20140429
